FAERS Safety Report 10179281 (Version 1)
Quarter: 2014Q2

REPORT INFORMATION
  Report Type: Spontaneous
  Country: US (occurrence: US)
  Receive Date: 20140519
  Receipt Date: 20140519
  Transmission Date: 20141212
  Serious: Yes (Hospitalization, Other)
  Sender: FDA-Public Use
  Company Number: CHPA2014US006224

PATIENT
  Age: 60 Year
  Sex: Male

DRUGS (3)
  1. BUCKLEY^S COUGH MIXTURE [Suspect]
     Indication: NASOPHARYNGITIS
     Dosage: 1 TABLESPOON, BID
  2. BUCKLEY^S COUGH MIXTURE [Suspect]
     Indication: OFF LABEL USE
  3. FUROSEMIDE [Concomitant]
     Dosage: 80 MG, BID

REACTIONS (6)
  - Cardiac failure congestive [Not Recovered/Not Resolved]
  - Hypoaesthesia [Not Recovered/Not Resolved]
  - Paraesthesia [Not Recovered/Not Resolved]
  - Diabetes mellitus [Not Recovered/Not Resolved]
  - Gait disturbance [Not Recovered/Not Resolved]
  - Therapeutic response changed [Unknown]
